FAERS Safety Report 6844606-9 (Version None)
Quarter: 2010Q3

REPORT INFORMATION
  Report Type: 
  Country: None (occurrence: None)
  Receive Date: 20100715
  Receipt Date: 20100708
  Transmission Date: 20110219
  Serious: Yes (Other)
  Sender: FDA-Public Use
  Company Number: FR-JNJFOC-20100602452

PATIENT
  Age: 72 Year
  Sex: Male

DRUGS (2)
  1. REMICADE [Suspect]
     Indication: RHEUMATOID ARTHRITIS
     Dosage: 50 INFUSIONS ON UNSPECIFIED DATES
     Route: 042
  2. METHOTREXATE [Concomitant]

REACTIONS (1)
  - SQUAMOUS CELL CARCINOMA [None]
